FAERS Safety Report 4997568-3 (Version None)
Quarter: 2006Q1

REPORT INFORMATION
  Report Type: 
  Country: None (occurrence: None)
  Receive Date: 20060315
  Receipt Date: 20051117
  Transmission Date: 20060701
  Serious: Yes (Other)
  Sender: FDA-Public Use
  Company Number: 425506

PATIENT
  Age: 70 Year
  Sex: Female

DRUGS (2)
  1. BONIVA [Suspect]
     Indication: DRUG USE FOR UNKNOWN INDICATION
     Dates: start: 20051015, end: 20051115
  2. IRON NOS (IRON NOS) [Suspect]
     Indication: DRUG USE FOR UNKNOWN INDICATION
     Dosage: ORAL
     Route: 048
     Dates: end: 20051115

REACTIONS (2)
  - TONGUE DISCOLOURATION [None]
  - TOOTH DISCOLOURATION [None]
